FAERS Safety Report 4570971-1 (Version None)
Quarter: 2005Q1

REPORT INFORMATION
  Report Type: 
  Country: None (occurrence: None)
  Receive Date: 20050204
  Receipt Date: 20050125
  Transmission Date: 20050727
  Serious: Yes (Disabling)
  Sender: FDA-Public Use
  Company Number: NO-MERCK-0501NOR00038

PATIENT
  Age: 51 Year
  Sex: Female

DRUGS (3)
  1. VIOXX [Suspect]
     Indication: TENDON INJURY
     Route: 048
     Dates: start: 20040109, end: 20040227
  2. VIOXX [Suspect]
     Route: 048
     Dates: start: 20040301
  3. CELECOXIB [Concomitant]
     Indication: TENDON INJURY
     Route: 065
     Dates: start: 20040227, end: 20040301

REACTIONS (1)
  - CEREBRAL INFARCTION [None]
